FAERS Safety Report 4620676-3 (Version None)
Quarter: 2005Q1

REPORT INFORMATION
  Report Type: 
  Country: None (occurrence: None)
  Receive Date: 20050321
  Receipt Date: 20050202
  Transmission Date: 20050727
  Serious: Yes (Other)
  Sender: FDA-Public Use
  Company Number: 200510059BBE

PATIENT
  Age: 32 Year
  Sex: Female

DRUGS (23)
  1. GAMUNEX [Suspect]
     Indication: HYPOGAMMAGLOBULINAEMIA
     Dosage: INTRAVENOUS
     Route: 042
     Dates: start: 20041021
  2. GAMUNEX [Suspect]
     Indication: POLYMYOSITIS
     Dosage: INTRAVENOUS
     Route: 042
     Dates: start: 20041021
  3. GAMUNEX [Suspect]
     Indication: HYPOGAMMAGLOBULINAEMIA
     Dosage: INTRAVENOUS
     Route: 042
     Dates: start: 20041029
  4. GAMUNEX [Suspect]
     Indication: POLYMYOSITIS
     Dosage: INTRAVENOUS
     Route: 042
     Dates: start: 20041029
  5. GAMUNEX [Suspect]
     Dates: start: 20041105
  6. GAMUNEX [Suspect]
     Dates: start: 20041119
  7. GAMUNEX [Suspect]
     Dates: start: 20041203
  8. GAMUNEX [Suspect]
     Dates: start: 20041210
  9. GAMUNEX [Suspect]
     Dates: start: 20050107
  10. GAMUNEX [Suspect]
     Dates: start: 20050114
  11. GAMUNEX [Suspect]
     Dates: start: 20050121
  12. GAMUNEX [Suspect]
     Dates: start: 20050128
  13. GAMUNEX [Suspect]
     Dates: start: 20040924
  14. GAMIMUNE N 10% [Suspect]
     Dosage: 10 G
     Dates: start: 20040903
  15. GAMIMUNE N 10% [Suspect]
     Dates: start: 20040910
  16. GAMIMUNE N 10% [Suspect]
     Dates: start: 20041008
  17. GAMIMUNE N 10% [Suspect]
     Dates: start: 20041015
  18. PROVIGIL [Concomitant]
  19. ZYRTEC [Concomitant]
  20. NASONEX [Concomitant]
  21. PROTAMINE [Concomitant]
  22. ZOLOFT [Concomitant]
  23. B12 [Concomitant]

REACTIONS (1)
  - HEPATITIS B ANTIBODY POSITIVE [None]
